FAERS Safety Report 5710635-1 (Version None)
Quarter: 2008Q2

REPORT INFORMATION
  Report Type: 
  Country: None (occurrence: None)
  Receive Date: 20080415
  Receipt Date: 20080408
  Transmission Date: 20081010
  Serious: Yes (Hospitalization)
  Sender: FDA-Public Use
  Company Number: E2020-02293-SPO-JP

PATIENT
  Age: 79 Year
  Sex: Female
  Weight: 57 kg

DRUGS (4)
  1. ARICEPT [Suspect]
     Indication: DEMENTIA ALZHEIMER'S TYPE
     Dosage: 3 MG, 1 IN 1 D, ORAL
     Route: 048
     Dates: start: 20080105, end: 20080118
  2. FAMOTIDINE [Concomitant]
  3. MAGMITT (MAGNESIUM OXIDE) [Concomitant]
  4. URSO 250 [Concomitant]

REACTIONS (3)
  - ASTHENIA [None]
  - DECREASED ACTIVITY [None]
  - DEPRESSED LEVEL OF CONSCIOUSNESS [None]
